FAERS Safety Report 23546102 (Version 5)
Quarter: 2024Q3

REPORT INFORMATION
  Report Type: Report from Study
  Country: CA (occurrence: CA)
  Receive Date: 20240220
  Receipt Date: 20240702
  Transmission Date: 20241017
  Serious: Yes (Other)
  Sender: OTSUKA
  Company Number: CA-OTSUKA-2024_004201

PATIENT
  Age: 75 Year
  Sex: Female

DRUGS (2)
  1. CEDAZURIDINE\DECITABINE [Suspect]
     Active Substance: CEDAZURIDINE\DECITABINE
     Indication: Chronic myelomonocytic leukaemia
     Dosage: 1 DF (35 MG DECITABINE AND 100 MG CEDAZURIDINE), QD (DAYS 1 THROUGH 5 OF EVERY 28 DAYS)
     Route: 048
     Dates: start: 20231213
  2. CEDAZURIDINE\DECITABINE [Suspect]
     Active Substance: CEDAZURIDINE\DECITABINE
     Dosage: 1 DF (35 MG DECITABINE AND 100 MG CEDAZURIDINE), QD (DAYS 1 THROUGH 3 PER CYCLE)
     Route: 048
     Dates: start: 20240404

REACTIONS (6)
  - Full blood count abnormal [Unknown]
  - Loss of consciousness [Unknown]
  - Contusion [Unknown]
  - Contusion [Unknown]
  - Red blood cell count decreased [Recovering/Resolving]
  - Platelet count decreased [Unknown]

NARRATIVE: CASE EVENT DATE: 20240201
